FAERS Safety Report 6044685-5 (Version None)
Quarter: 2009Q1

REPORT INFORMATION
  Report Type: 
  Country: None (occurrence: None)
  Receive Date: 20090120
  Receipt Date: 20090113
  Transmission Date: 20090719
  Serious: Yes (Death, Hospitalization, Other)
  Sender: FDA-Public Use
  Company Number: US-CELGENEUS-163-21880-08100770

PATIENT
  Sex: Female

DRUGS (3)
  1. REVLIMID [Suspect]
     Indication: MULTIPLE MYELOMA
     Route: 048
     Dates: start: 20080818, end: 20080922
  2. SINGULAIR [Concomitant]
     Route: 065
  3. COMBIVENT [Concomitant]
     Route: 065

REACTIONS (9)
  - ACUTE RESPIRATORY DISTRESS SYNDROME [None]
  - CARDIO-RESPIRATORY ARREST [None]
  - DEEP VEIN THROMBOSIS [None]
  - DISEASE PROGRESSION [None]
  - HYPOTENSION [None]
  - METABOLIC ACIDOSIS [None]
  - RESPIRATORY ARREST [None]
  - SHOCK [None]
  - TACHYCARDIA [None]
